FAERS Safety Report 21285947 (Version 1)
Quarter: 2022Q3

REPORT INFORMATION
  Report Type: Spontaneous
  Country: US (occurrence: US)
  Receive Date: 20220902
  Receipt Date: 20220902
  Transmission Date: 20221026
  Serious: Yes (Other)
  Sender: FDA-Public Use
  Company Number: US-BRISTOL-MYERS SQUIBB COMPANY-2022-095411

PATIENT
  Age: 65 Year
  Sex: Male
  Weight: 88.45 kg

DRUGS (1)
  1. REVLIMID [Suspect]
     Active Substance: LENALIDOMIDE
     Indication: Plasma cell myeloma
     Dosage: DAILY FOR 14D, 7OFF
     Route: 048
     Dates: start: 20220401

REACTIONS (3)
  - Blood bilirubin abnormal [Unknown]
  - Renal impairment [Unknown]
  - Off label use [Unknown]
